FAERS Safety Report 21352274 (Version 1)
Quarter: 2022Q3

REPORT INFORMATION
  Report Type: Spontaneous
  Country: US (occurrence: US)
  Receive Date: 20220920
  Receipt Date: 20220920
  Transmission Date: 20221027
  Serious: No
  Sender: FDA-Public Use
  Company Number: US-BION-010780

PATIENT
  Sex: Female

DRUGS (1)
  1. ZYRTEC [Suspect]
     Active Substance: CETIRIZINE HYDROCHLORIDE
     Indication: Urticaria
     Dosage: DOSE: 1 CAPLET IN THE MORNING, 1 CAPLET LATE IN THE DAY AND 1 IN THE EVENING
     Dates: start: 2018

REACTIONS (4)
  - Chest discomfort [Unknown]
  - Adverse drug reaction [Unknown]
  - Product use in unapproved indication [Not Recovered/Not Resolved]
  - Incorrect dose administered [Not Recovered/Not Resolved]
